FAERS Safety Report 9473135 (Version 2)
Quarter: 2013Q3

REPORT INFORMATION
  Report Type: Spontaneous
  Country: US (occurrence: US)
  Receive Date: 20130823
  Receipt Date: 20130823
  Transmission Date: 20140515
  Serious: No
  Sender: FDA-Public Use
  Company Number: US-BRISTOL-MYERS SQUIBB COMPANY-17473729

PATIENT
  Age: 37 Year
  Sex: Female
  Weight: 43.99 kg

DRUGS (1)
  1. SPRYCEL [Suspect]
     Indication: CHRONIC MYELOID LEUKAEMIA
     Route: 048
     Dates: start: 20130212

REACTIONS (2)
  - Furuncle [Not Recovered/Not Resolved]
  - Nausea [Not Recovered/Not Resolved]
